FAERS Safety Report 8897097 (Version 2)
Quarter: 2012Q4

REPORT INFORMATION
  Report Type: 
  Country: HK (occurrence: HK)
  Receive Date: 20121108
  Receipt Date: 20121115
  Transmission Date: 20130627
  Serious: Yes (Other)
  Sender: FDA-Public Use
  Company Number: HK-B.I. PHARMACEUTICALS,INC./RIDGEFIELD-2012-BP-27417YA

PATIENT
  Sex: Male

DRUGS (1)
  1. TAMSULOSINA [Suspect]
     Indication: DYSURIA
     Dosage: 0.4 mg
     Route: 048

REACTIONS (1)
  - Glaucoma [Unknown]
